FAERS Safety Report 24890252 (Version 1)
Quarter: 2025Q1

REPORT INFORMATION
  Report Type: Spontaneous
  Country: US (occurrence: US)
  Receive Date: 20250127
  Receipt Date: 20250127
  Transmission Date: 20250408
  Serious: No
  Sender: PERRIGO
  Company Number: US-PERRIGO-24US009345

PATIENT
  Age: 3 Year
  Sex: Male
  Weight: 18.141 kg

DRUGS (1)
  1. IBUPROFEN [Suspect]
     Active Substance: IBUPROFEN
     Indication: Pyrexia
     Route: 048
     Dates: start: 20240901, end: 20240901

REACTIONS (5)
  - Allergic reaction to excipient [Recovered/Resolved]
  - Pain in extremity [Recovered/Resolved]
  - Psychomotor hyperactivity [Recovered/Resolved]
  - Abdominal pain upper [Recovered/Resolved]
  - Wrong product administered [Recovered/Resolved]

NARRATIVE: CASE EVENT DATE: 20240901
